FAERS Safety Report 10216054 (Version 2)
Quarter: 2014Q2

REPORT INFORMATION
  Report Type: Spontaneous
  Country: CH (occurrence: CH)
  Receive Date: 20140604
  Receipt Date: 20140604
  Transmission Date: 20141212
  Serious: Yes (Disabling)
  Sender: FDA-Public Use
  Company Number: CH-ELI_LILLY_AND_COMPANY-CH201404008169

PATIENT
  Age: 53 Year
  Sex: Female

DRUGS (7)
  1. CYMBALTA [Suspect]
     Indication: MAJOR DEPRESSION
     Dosage: 30 MG, QD
     Route: 048
     Dates: start: 20131029, end: 20131115
  2. CYMBALTA [Suspect]
     Indication: DEPRESSION
     Dosage: 60 MG, QD
     Route: 048
     Dates: start: 20131119, end: 20140215
  3. MORPHIN                            /00036303/ [Concomitant]
  4. CELEBREX [Concomitant]
     Dosage: 100 MG, QD
     Route: 065
  5. CELEBREX [Concomitant]
     Dosage: 200 MG, QD
     Route: 065
  6. PALLADON RETARD [Concomitant]
     Dosage: 24 MG, TID
     Route: 065
  7. VALORON [Concomitant]
     Dosage: UNK, OTHER, UP TO QID
     Route: 065

REACTIONS (1)
  - Dental caries [Not Recovered/Not Resolved]
